FAERS Safety Report 8017526-4 (Version None)
Quarter: 2011Q4

REPORT INFORMATION
  Report Type: 
  Country: None (occurrence: None)
  Receive Date: 20111228
  Receipt Date: 20111228
  Transmission Date: 20120403
  Serious: Yes (Disabling, Other)
  Sender: FDA-Public Use
  Company Number: None

PATIENT
  Sex: Male
  Weight: 95.2554 kg

DRUGS (3)
  1. PEGASYS [Suspect]
     Indication: LIVER DISORDER
     Dosage: 800MG EACH DAILY ORAL AND INJECTION
     Route: 048
     Dates: start: 20100401, end: 20101001
  2. TYLENOL-500 [Suspect]
     Indication: PYREXIA
     Dosage: 6-8 TABS DAILY DAILY  30 YRS ORAL
     Route: 048
     Dates: start: 19850101, end: 20100101
  3. TYLENOL-500 [Suspect]
     Indication: PAIN
     Dosage: 6-8 TABS DAILY DAILY  30 YRS ORAL
     Route: 048
     Dates: start: 19850101, end: 20100101

REACTIONS (7)
  - INFLAMMATION [None]
  - HEADACHE [None]
  - LIVER INJURY [None]
  - SEXUAL DYSFUNCTION [None]
  - DIARRHOEA [None]
  - VISION BLURRED [None]
  - MULTI-ORGAN DISORDER [None]
